FAERS Safety Report 11167867 (Version 1)
Quarter: 2015Q2

REPORT INFORMATION
  Report Type: Spontaneous
  Country: DE (occurrence: DE)
  Receive Date: 20150605
  Receipt Date: 20150605
  Transmission Date: 20150821
  Serious: Yes (Hospitalization, Other)
  Sender: FDA-Public Use
  Company Number: DE-NOVOPROD-451283

PATIENT
  Age: 68 Year
  Sex: Female

DRUGS (1)
  1. ESTRIFAM [Suspect]
     Active Substance: ESTRADIOL
     Indication: MENOPAUSAL SYMPTOMS
     Dosage: 2 MG, QD
     Route: 065

REACTIONS (2)
  - Cataract [Unknown]
  - Dementia Alzheimer^s type [Unknown]
